FAERS Safety Report 16959212 (Version 2)
Quarter: 2020Q3

REPORT INFORMATION
  Report Type: Report from Study
  Country: None (occurrence: GB)
  Receive Date: 20191024
  Receipt Date: 20200909
  Transmission Date: 20201102
  Serious: Yes (Other)
  Sender: FDA-Public Use
  Company Number: GB-ABBVIE-19K-167-2973591-00

PATIENT
  Sex: Female

DRUGS (2)
  1. FLUOXETINE [Concomitant]
     Active Substance: FLUOXETINE HYDROCHLORIDE
     Indication: PRODUCT USED FOR UNKNOWN INDICATION
  2. HUMIRA [Suspect]
     Active Substance: ADALIMUMAB
     Indication: RHEUMATOID ARTHRITIS
     Route: 058

REACTIONS (4)
  - Pain in extremity [Not Recovered/Not Resolved]
  - Procedural pain [Unknown]
  - Hysterectomy [Recovering/Resolving]
  - Infection [Unknown]

NARRATIVE: CASE EVENT DATE: 2019
